FAERS Safety Report 18227585 (Version 1)
Quarter: 2020Q3

REPORT INFORMATION
  Report Type: Spontaneous
  Country: US (occurrence: US)
  Receive Date: 20200903
  Receipt Date: 20200903
  Transmission Date: 20201103
  Serious: Yes (Death)
  Sender: FDA-Public Use
  Company Number: None

PATIENT
  Age: 84 Year
  Sex: Female

DRUGS (21)
  1. TORSEMIDE. [Concomitant]
     Active Substance: TORSEMIDE
  2. MECLIZINE  HCI, [Concomitant]
  3. POTASSIUM CHLORIDE ER [Concomitant]
     Active Substance: POTASSIUM CHLORIDE
  4. PREDNISONE. [Concomitant]
     Active Substance: PREDNISONE
  5. WARFARIN SODIUM. [Concomitant]
     Active Substance: WARFARIN SODIUM
  6. AZITHROMYCIN ANHYDROUS. [Suspect]
     Active Substance: AZITHROMYCIN ANHYDROUS
  7. ESZOPICLONE. [Suspect]
     Active Substance: ESZOPICLONE
  8. FAMOTIDINE. [Suspect]
     Active Substance: FAMOTIDINE
  9. CAPECITABINE 500MG TAB [Suspect]
     Active Substance: CAPECITABINE
     Indication: BREAST CANCER FEMALE
     Dosage: ?          OTHER DOSE:3000;?
     Route: 048
     Dates: start: 20200708
  10. AMLODIPINE BESYLATE. [Suspect]
     Active Substance: AMLODIPINE BESYLATE
  11. CLONIDINE  HCI [Concomitant]
  12. CRESTOR [Suspect]
     Active Substance: ROSUVASTATIN CALCIUM
  13. DOCUSATE SODIUM. [Suspect]
     Active Substance: DOCUSATE SODIUM
  14. RALOXIFENE HCI [Concomitant]
  15. FERROUS SULFATE. [Suspect]
     Active Substance: FERROUS SULFATE
  16. LEVOTHYROXINE SODIUM. [Suspect]
     Active Substance: LEVOTHYROXINE SODIUM
  17. SODIUM BICARBONATE. [Concomitant]
     Active Substance: SODIUM BICARBONATE
  18. GABAPENTIN. [Suspect]
     Active Substance: GABAPENTIN
  19. LORAZEPAM. [Suspect]
     Active Substance: LORAZEPAM
  20. METOPROLOL TARTRATE. [Concomitant]
     Active Substance: METOPROLOL TARTRATE
  21. PANTOPRAZOLE SODIUM. [Concomitant]
     Active Substance: PANTOPRAZOLE SODIUM

REACTIONS (1)
  - Death [None]

NARRATIVE: CASE EVENT DATE: 20200731
